FAERS Safety Report 19597819 (Version 1)
Quarter: 2021Q3

REPORT INFORMATION
  Report Type: Spontaneous
  Country: US (occurrence: US)
  Receive Date: 20210723
  Receipt Date: 20210723
  Transmission Date: 20211014
  Serious: Yes (Other)
  Sender: FDA-Public Use
  Company Number: US-ASTRAZENECA-2021A628776

PATIENT
  Sex: Female
  Weight: 51.7 kg

DRUGS (3)
  1. IBRANCE [Suspect]
     Active Substance: PALBOCICLIB
     Indication: NEOPLASM MALIGNANT
     Dosage: ONE TABLET EVERY DAY FOR 28 DAYS AND THEN OFF FOR 7 DAYS BY MOUTH.100.0MG UNKNOWN
     Route: 048
     Dates: start: 20200911
  2. IBRANCE [Suspect]
     Active Substance: PALBOCICLIB
     Indication: NEOPLASM MALIGNANT
     Dosage: 125.0MG UNKNOWN
     Route: 048
     Dates: start: 2017
  3. FASLODEX [Suspect]
     Active Substance: FULVESTRANT
     Indication: NEOPLASM MALIGNANT
     Route: 030

REACTIONS (11)
  - Neoplasm malignant [Unknown]
  - Speech disorder [Unknown]
  - Fatigue [Unknown]
  - Red blood cell count decreased [Unknown]
  - Platelet count decreased [Unknown]
  - Adverse reaction [Unknown]
  - Cerebrovascular accident [Unknown]
  - White blood cell count decreased [Unknown]
  - Dizziness [Unknown]
  - Product dose omission issue [Unknown]
  - Asthenia [Unknown]
